FAERS Safety Report 9233274 (Version 2)
Quarter: 2013Q2

REPORT INFORMATION
  Report Type: Spontaneous
  Country: US (occurrence: US)
  Receive Date: 20130416
  Receipt Date: 20130507
  Transmission Date: 20140414
  Serious: Yes (Death)
  Sender: FDA-Public Use
  Company Number: US-PFIZER INC-2013116144

PATIENT
  Age: 71 Year
  Sex: Female

DRUGS (9)
  1. SUTENT [Suspect]
     Indication: RENAL CANCER
     Dosage: 25 MG, UNK
     Dates: start: 20130327
  2. SUTENT [Suspect]
     Dosage: 37.5 MG, 1X/DAY
     Route: 048
     Dates: end: 20130409
  3. SINGULAIR [Concomitant]
     Dosage: UNK
  4. ZYRTEC [Concomitant]
     Indication: HYPERSENSITIVITY
     Dosage: UNK
  5. BYSTOLIC [Concomitant]
     Dosage: UNK
  6. MEGACE [Concomitant]
  7. PHENERGAN [Concomitant]
     Dosage: UNK
     Route: 048
  8. LEVOTHYROXINE SODIUM [Concomitant]
     Dosage: UNK
  9. HYDROCODONE W/ACETAMINOPHEN [Concomitant]
     Dosage: UNK

REACTIONS (1)
  - Respiratory failure [Fatal]
